FAERS Safety Report 6716954-4 (Version None)
Quarter: 2010Q2

REPORT INFORMATION
  Report Type: 
  Country: None (occurrence: None)
  Receive Date: 20100506
  Receipt Date: 20100506
  Transmission Date: 20101027
  Serious: Yes (Other)
  Sender: FDA-Public Use
  Company Number: None

PATIENT

DRUGS (1)
  1. TERAZOSIN HCL [Suspect]
     Indication: POLLAKIURIA
     Dates: start: 20100415

REACTIONS (6)
  - INSOMNIA [None]
  - KIDNEY INFECTION [None]
  - PRURITUS [None]
  - RASH ERYTHEMATOUS [None]
  - SKIN MASS [None]
  - SWELLING FACE [None]
